FAERS Safety Report 10281028 (Version 1)
Quarter: 2014Q3

REPORT INFORMATION
  Report Type: Spontaneous
  Country: US (occurrence: None)
  Receive Date: 20140702
  Receipt Date: 20140702
  Transmission Date: 20150326
  Serious: Yes (Other)
  Sender: FDA-Public Use
  Company Number: None

PATIENT
  Age: 78 Year
  Sex: Female
  Weight: 57.61 kg

DRUGS (3)
  1. THYROID SUPPORT NATURAL HOMEOPATHIC [Concomitant]
  2. SULFAMETHAXAZOLE AND TRIMETHOPRIM (SMZ/DS800-160-TAB PURCHASED AT WA;-MART PHARMACY RX 6994671 OC#405923 861 076 592 384 107 659 238 [Suspect]
     Active Substance: SULFAMETHOXAZOLE\TRIMETHOPRIM
     Indication: URINARY TRACT INFECTION
     Route: 048
     Dates: start: 20140616, end: 20140619
  3. VITAMINS [Concomitant]
     Active Substance: VITAMINS

REACTIONS (4)
  - Dysphagia [None]
  - Glossodynia [None]
  - Tongue discolouration [None]
  - Throat tightness [None]

NARRATIVE: CASE EVENT DATE: 20140616
